FAERS Safety Report 10182374 (Version 3)
Quarter: 2014Q3

REPORT INFORMATION
  Report Type: Spontaneous
  Country: US (occurrence: US)
  Receive Date: 20140520
  Receipt Date: 20140820
  Transmission Date: 20150326
  Serious: Yes (Other)
  Sender: FDA-Public Use
  Company Number: US-RANBAXY-2014US-81221

PATIENT
  Age: 50 Year
  Sex: Male
  Weight: 61.22 kg

DRUGS (1)
  1. ACETAMINOPHEN. [Suspect]
     Active Substance: ACETAMINOPHEN
     Indication: PRODUCT USED FOR UNKNOWN INDICATION
     Dosage: 650 MG, SINGLE
     Route: 065
     Dates: start: 20140506, end: 20140506

REACTIONS (2)
  - Choking [Recovered/Resolved]
  - Foaming at mouth [Recovered/Resolved]

NARRATIVE: CASE EVENT DATE: 20140506
